FAERS Safety Report 14951273 (Version 1)
Quarter: 2018Q2

REPORT INFORMATION
  Report Type: Spontaneous
  Country: US (occurrence: US)
  Receive Date: 20180508
  Receipt Date: 20180508
  Transmission Date: 20180711
  Serious: No
  Sender: FDA-Public Use
  Company Number: None

PATIENT
  Age: 49 Year
  Sex: Female

DRUGS (18)
  1. ATROVENT [Concomitant]
     Active Substance: IPRATROPIUM BROMIDE
  2. VENTOLIN HFA [Concomitant]
     Active Substance: ALBUTEROL SULFATE
  3. CINACALCOT [Concomitant]
  4. NORTRIPTYLINE [Concomitant]
     Active Substance: NORTRIPTYLINE
  5. AMLODIPINE [Concomitant]
     Active Substance: AMLODIPINE BESYLATE
  6. QVAR [Concomitant]
     Active Substance: BECLOMETHASONE DIPROPIONATE
  7. ZYRTEC [Concomitant]
     Active Substance: CETIRIZINE HYDROCHLORIDE
  8. OPSUMIT [Suspect]
     Active Substance: MACITENTAN
     Indication: PULMONARY EMBOLISM
     Route: 048
     Dates: start: 201701
  9. ATENOLOL. [Concomitant]
     Active Substance: ATENOLOL
  10. ALBUTEROL. [Concomitant]
     Active Substance: ALBUTEROL
  11. LORAZEPAM. [Concomitant]
     Active Substance: LORAZEPAM
  12. ESTRACE [Concomitant]
     Active Substance: ESTRADIOL
  13. TRAMADOL. [Concomitant]
     Active Substance: TRAMADOL
  14. MIDODRINE [Concomitant]
     Active Substance: MIDODRINE
  15. EFFEXOR [Concomitant]
     Active Substance: VENLAFAXINE HYDROCHLORIDE
  16. NEPHRO-VITE [Concomitant]
  17. CYCLOBENZAPRINE. [Concomitant]
     Active Substance: CYCLOBENZAPRINE
  18. OMEPRAZOLE. [Concomitant]
     Active Substance: OMEPRAZOLE

REACTIONS (2)
  - Sciatica [None]
  - Condition aggravated [None]

NARRATIVE: CASE EVENT DATE: 20180422
